FAERS Safety Report 10777483 (Version 1)
Quarter: 2015Q1

REPORT INFORMATION
  Report Type: Spontaneous
  Country: US (occurrence: US)
  Receive Date: 20150209
  Receipt Date: 20150209
  Transmission Date: 20150721
  Serious: No
  Sender: FDA-Public Use
  Company Number: US-GLAXOSMITHKLINE-A1087478A

PATIENT

DRUGS (2)
  1. IMITREX [Suspect]
     Active Substance: SUMATRIPTAN\SUMATRIPTAN SUCCINATE
     Indication: HEAD INJURY
  2. IMITREX SPRAY [Suspect]
     Active Substance: SUMATRIPTAN
     Indication: HEAD INJURY

REACTIONS (2)
  - Cognitive disorder [Unknown]
  - Visual impairment [Unknown]
